FAERS Safety Report 9921687 (Version 1)
Quarter: 2014Q1

REPORT INFORMATION
  Report Type: Spontaneous
  Country: GB (occurrence: GB)
  Receive Date: 20140225
  Receipt Date: 20140225
  Transmission Date: 20141002
  Serious: Yes (Other)
  Sender: FDA-Public Use
  Company Number: GB-UCBSA-113214

PATIENT
  Age: 78 Year
  Sex: Male

DRUGS (2)
  1. CO-CODAMOL [Suspect]
  2. XARELTO [Suspect]
     Indication: DEEP VEIN THROMBOSIS

REACTIONS (4)
  - Haematoma [Unknown]
  - Pain [Unknown]
  - Swelling [Unknown]
  - Synovial cyst [Unknown]
